FAERS Safety Report 13237009 (Version 1)
Quarter: 2017Q1

REPORT INFORMATION
  Report Type: Spontaneous
  Country: SE (occurrence: SE)
  Receive Date: 20170215
  Receipt Date: 20170215
  Transmission Date: 20170428
  Serious: Yes (Other)
  Sender: FDA-Public Use
  Company Number: SE-TEVA-736855ISR

PATIENT
  Age: 49 Year
  Sex: Female

DRUGS (1)
  1. OLANZAPINE ACTAVIS [Suspect]
     Active Substance: OLANZAPINE
     Indication: ACUTE STRESS DISORDER
     Route: 065
     Dates: end: 20160928

REACTIONS (5)
  - Thrombosis [Unknown]
  - Pulmonary thrombosis [Unknown]
  - Pulmonary pain [Unknown]
  - Total lung capacity decreased [Unknown]
  - Systemic lupus erythematosus [Unknown]

NARRATIVE: CASE EVENT DATE: 20160711
